FAERS Safety Report 4480665-9 (Version None)
Quarter: 2004Q4

REPORT INFORMATION
  Report Type: 
  Country: None (occurrence: None)
  Receive Date: 20041019
  Receipt Date: 20041006
  Transmission Date: 20050328
  Serious: Yes (Other)
  Sender: FDA-Public Use
  Company Number: 2004075462

PATIENT
  Sex: Female

DRUGS (8)
  1. NEURONTIN [Suspect]
     Indication: EPILEPSY
  2. DILANTIN [Suspect]
     Indication: EPILEPSY
  3. VALPROATE SODIUM [Suspect]
     Indication: EPILEPSY
  4. LAMOTRIGINE [Suspect]
     Indication: EPILEPSY
  5. PHENOBARBITAL TAB [Suspect]
     Indication: EPILEPSY
  6. OXCARBAZEPINE (OXCARBAZEPINE) [Suspect]
     Indication: EPILEPSY
  7. TOPIRAMATE [Concomitant]
  8. CARBAMAZEPINE [Concomitant]

REACTIONS (3)
  - DRUG INEFFECTIVE [None]
  - GRAND MAL CONVULSION [None]
  - PARTIAL SEIZURES [None]
